FAERS Safety Report 18325625 (Version 2)
Quarter: 2020Q4

REPORT INFORMATION
  Report Type: Report from Study
  Country: BE (occurrence: BE)
  Receive Date: 20200929
  Receipt Date: 20201002
  Transmission Date: 20210113
  Serious: Yes (Hospitalization)
  Sender: FDA-Public Use
  Company Number: BE-BAYER-2020-143252

PATIENT
  Age: 72 Year
  Sex: Female

DRUGS (8)
  1. FOLAVIT [Concomitant]
     Active Substance: FOLIC ACID
     Dosage: UNK
  2. ALLOPURINOL. [Concomitant]
     Active Substance: ALLOPURINOL
     Dosage: UNK
  3. LACTULOSE. [Concomitant]
     Active Substance: LACTULOSE
     Dosage: UNK
  4. CALCIUM [Concomitant]
     Active Substance: CALCIUM
     Dosage: UNK
  5. TARGAXAN [Concomitant]
     Active Substance: RIFAXIMIN
     Dosage: UNK
  6. NOVOMIX [Concomitant]
     Active Substance: INSULIN ASPART
     Dosage: UNK
  7. NEXAVAR [Suspect]
     Active Substance: SORAFENIB
     Indication: HEPATOCELLULAR CARCINOMA
     Dosage: 800 MG
     Dates: start: 20200707
  8. PANTOMED [PANTOPRAZOLE SODIUM SESQUIHYDRATE] [Concomitant]
     Active Substance: PANTOPRAZOLE SODIUM
     Dosage: UNK

REACTIONS (14)
  - Enterocolitis infectious [None]
  - Aphonia [Not Recovered/Not Resolved]
  - Muscle spasms [Recovering/Resolving]
  - Oral fungal infection [Recovering/Resolving]
  - Platelet count decreased [Not Recovered/Not Resolved]
  - Diarrhoea [Not Recovered/Not Resolved]
  - Blood urine present [Recovered/Resolved]
  - White blood cell count decreased [Not Recovered/Not Resolved]
  - Pruritus [Recovering/Resolving]
  - Dehydration [Not Recovered/Not Resolved]
  - Urinary tract infection [None]
  - Vomiting [Recovered/Resolved]
  - Fall [Recovered/Resolved]
  - Bacterial test positive [Recovered/Resolved]

NARRATIVE: CASE EVENT DATE: 20200714
